FAERS Safety Report 21437015 (Version 2)
Quarter: 2022Q4

REPORT INFORMATION
  Report Type: Spontaneous
  Country: PT (occurrence: PT)
  Receive Date: 20221010
  Receipt Date: 20221021
  Transmission Date: 20230113
  Serious: Yes (Other)
  Sender: FDA-Public Use
  Company Number: PT-PFM-2022-07273

PATIENT
  Age: 44 Year
  Sex: Male

DRUGS (5)
  1. BRAFTOVI [Suspect]
     Active Substance: ENCORAFENIB
     Indication: Malignant melanoma stage IV
     Dosage: 450 MG, QD (1/DAY)
     Route: 048
     Dates: start: 202107
  2. BRAFTOVI [Suspect]
     Active Substance: ENCORAFENIB
     Indication: BRAF gene mutation
     Dosage: 300MG/DAY
     Route: 048
     Dates: start: 202110
  3. MEKTOVI [Suspect]
     Active Substance: BINIMETINIB
     Indication: Malignant melanoma stage IV
     Dosage: 45 MG, BID (2/DAY)
     Route: 048
     Dates: start: 202107
  4. MEKTOVI [Suspect]
     Active Substance: BINIMETINIB
     Indication: BRAF gene mutation
     Dosage: 30 MG, BID (2/DAY)
     Route: 048
     Dates: start: 202110
  5. BISOPROLOL [Concomitant]
     Active Substance: BISOPROLOL
     Dosage: 2.5 MG
     Route: 065

REACTIONS (3)
  - Hepatotoxicity [Recovered/Resolved]
  - Blood creatine phosphokinase increased [Recovered/Resolved]
  - Rash [Unknown]

NARRATIVE: CASE EVENT DATE: 20210901
